FAERS Safety Report 6173219-X (Version None)
Quarter: 2009Q2

REPORT INFORMATION
  Report Type: 
  Country: None (occurrence: None)
  Receive Date: 20090424
  Receipt Date: 20090109
  Transmission Date: 20091009
  Serious: No
  Sender: FDA-Public Use
  Company Number: ALL1-2008-03612

PATIENT
  Age: 22 Year
  Sex: Female
  Weight: 56.7 kg

DRUGS (4)
  1. VYVANSE [Suspect]
     Indication: ATTENTION DEFICIT/HYPERACTIVITY DISORDER
     Dosage: 50 MG, 1X/DAY:QD, ORAL
     Route: 048
     Dates: start: 20081215
  2. ORAL CONTRACEPTIVE NOS [Concomitant]
  3. LORTAB [Concomitant]
  4. SOMA [Concomitant]

REACTIONS (2)
  - ANTISOCIAL BEHAVIOUR [None]
  - INHIBITORY DRUG INTERACTION [None]
